FAERS Safety Report 8552351-7 (Version None)
Quarter: 2012Q3

REPORT INFORMATION
  Report Type: 
  Country: None (occurrence: None)
  Receive Date: 20120731
  Receipt Date: 20120723
  Transmission Date: 20120928
  Serious: Yes (Hospitalization, Other)
  Sender: FDA-Public Use
  Company Number: US-BAYER-2011-055454

PATIENT
  Age: 37 Year
  Sex: Female
  Weight: 109 kg

DRUGS (10)
  1. MIRAPEX [Concomitant]
  2. PHENERGAN HCL [Concomitant]
  3. DEPO-PROVERA [Concomitant]
  4. NEURONTIN [Concomitant]
  5. LIPITOR [Concomitant]
     Dosage: UNK
     Dates: start: 20090508, end: 20091013
  6. YAZ [Suspect]
     Indication: PREMENSTRUAL SYNDROME
     Dates: start: 20070101, end: 20090801
  7. LISINOPRIL AND HYDROCHLOROTHIAZIDE [Concomitant]
  8. ZANAFLEX [Concomitant]
     Indication: BACK PAIN
  9. PROVERA [Concomitant]
     Indication: HORMONE THERAPY
     Dosage: UNK
     Dates: start: 19980801
  10. VICODIN [Concomitant]
     Indication: PAIN
     Dosage: 1 TABLET, EVERY 4-6 HOURS, UNK

REACTIONS (9)
  - MYOCARDIAL INFARCTION [None]
  - CHOLECYSTITIS CHRONIC [None]
  - PAIN [None]
  - FEAR [None]
  - PULMONARY EMBOLISM [None]
  - GALLBLADDER DISORDER [None]
  - MENTAL DISORDER [None]
  - CEREBROVASCULAR ACCIDENT [None]
  - DEEP VEIN THROMBOSIS [None]
